FAERS Safety Report 6121915-2 (Version None)
Quarter: 2009Q1

REPORT INFORMATION
  Report Type: 
  Country: None (occurrence: None)
  Receive Date: 20090317
  Receipt Date: 20090306
  Transmission Date: 20090719
  Serious: Yes (Hospitalization)
  Sender: FDA-Public Use
  Company Number: CH-GILEAD-2009-0020727

PATIENT
  Sex: Male
  Weight: 79 kg

DRUGS (6)
  1. TRUVADA [Suspect]
     Indication: HIV INFECTION
     Route: 048
  2. NEVIRAPINE [Suspect]
     Indication: HIV INFECTION
     Route: 048
     Dates: start: 20071218
  3. IBUPROFEN TABLETS [Concomitant]
     Indication: PYREXIA
     Route: 048
     Dates: start: 20080226
  4. DAFALGAN [Concomitant]
     Indication: PYREXIA
     Route: 048
  5. ATAZANAVIR SULFATE [Concomitant]
     Indication: HIV INFECTION
  6. RITONAVIR [Concomitant]
     Indication: HIV INFECTION

REACTIONS (2)
  - LYMPHOMA [None]
  - PYREXIA [None]
